FAERS Safety Report 24723351 (Version 1)
Quarter: 2024Q4

REPORT INFORMATION
  Report Type: Spontaneous
  Country: US (occurrence: US)
  Receive Date: 20241211
  Receipt Date: 20241211
  Transmission Date: 20250114
  Serious: No
  Sender: SANOFI AVENTIS
  Company Number: US-SA-2024SA339838

PATIENT
  Sex: Male
  Weight: 76.36 kg

DRUGS (9)
  1. DUPIXENT [Suspect]
     Active Substance: DUPILUMAB
     Dosage: UNK
  2. ZORYVE [Concomitant]
     Active Substance: ROFLUMILAST
  3. TACROLIMUS [Concomitant]
     Active Substance: TACROLIMUS
  4. CLOBETASOL [Concomitant]
     Active Substance: CLOBETASOL
  5. TADALAFIL [Concomitant]
     Active Substance: TADALAFIL
  6. Centrum adults [Concomitant]
  7. CIALIS [Concomitant]
     Active Substance: TADALAFIL
  8. HYDROCHLOROTHIAZIDE [Concomitant]
     Active Substance: HYDROCHLOROTHIAZIDE
  9. ATORVASTATIN CALCIUM [Concomitant]
     Active Substance: ATORVASTATIN CALCIUM

REACTIONS (2)
  - Skin lesion [Unknown]
  - Skin discolouration [Unknown]
